FAERS Safety Report 8311142-2 (Version None)
Quarter: 2012Q2

REPORT INFORMATION
  Report Type: 
  Country: None (occurrence: None)
  Receive Date: 20120425
  Receipt Date: 20120416
  Transmission Date: 20120825
  Serious: Yes (Other)
  Sender: FDA-Public Use
  Company Number: EE-ASTRAZENECA-2012SE25513

PATIENT
  Age: 40 Year
  Sex: Female

DRUGS (1)
  1. VIMOVO [Suspect]
     Indication: MUSCULOSKELETAL PAIN
     Dosage: 500 MG/20 MG TWO TIMES A DAY
     Route: 048
     Dates: start: 20120215, end: 20120215

REACTIONS (1)
  - FACE OEDEMA [None]
